FAERS Safety Report 11751371 (Version 2)
Quarter: 2015Q4

REPORT INFORMATION
  Report Type: Spontaneous
  Country: IT (occurrence: IT)
  Receive Date: 20151118
  Receipt Date: 20151203
  Transmission Date: 20160304
  Serious: Yes (Hospitalization)
  Sender: FDA-Public Use
  Company Number: IT-JNJFOC-20151116075

PATIENT
  Age: 51 Year
  Sex: Male
  Weight: 53 kg

DRUGS (2)
  1. OLYSIO [Suspect]
     Active Substance: SIMEPREVIR
     Indication: HEPATIC CIRRHOSIS
     Route: 048
     Dates: start: 20150603, end: 20150706
  2. SOVALDI [Suspect]
     Active Substance: SOFOSBUVIR
     Indication: HEPATIC CIRRHOSIS
     Route: 048
     Dates: start: 20150603, end: 20150706

REACTIONS (3)
  - Hyperammonaemia [Unknown]
  - Hepatic encephalopathy [Recovering/Resolving]
  - Blood bilirubin increased [Recovering/Resolving]

NARRATIVE: CASE EVENT DATE: 20150706
